FAERS Safety Report 6450891-8 (Version None)
Quarter: 2009Q4

REPORT INFORMATION
  Report Type: 
  Country: None (occurrence: None)
  Receive Date: 20091123
  Receipt Date: 20091109
  Transmission Date: 20100525
  Serious: No
  Sender: FDA-Public Use
  Company Number: BR-PFIZER INC-2009230073

PATIENT
  Age: 75 Year
  Sex: Male
  Weight: 90 kg

DRUGS (1)
  1. NEURONTIN [Suspect]
     Indication: DEMYELINATION
     Dosage: 300 MG, 2X/DAY
     Route: 048
     Dates: start: 20090401, end: 20090901

REACTIONS (2)
  - ERECTILE DYSFUNCTION [None]
  - SOMNOLENCE [None]
